FAERS Safety Report 16257075 (Version 2)
Quarter: 2019Q2

REPORT INFORMATION
  Report Type: Spontaneous
  Country: DE (occurrence: DE)
  Receive Date: 20190430
  Receipt Date: 20190623
  Transmission Date: 20190711
  Serious: Yes (Other)
  Sender: FDA-Public Use
  Company Number: PHHY2019DE096136

PATIENT
  Age: 44 Year
  Sex: Female

DRUGS (3)
  1. CORTISONE [Suspect]
     Active Substance: CORTISONE\HYDROCORTISONE
     Indication: MULTIPLE SCLEROSIS RELAPSE
     Dosage: UNK, HIGH-DOSE TREATMENT WAS ADMINISTERED TWICE WITHIN THREE MONTHS
     Route: 065
  2. BETAFERON [Suspect]
     Active Substance: INTERFERON BETA-1B
     Indication: MULTIPLE SCLEROSIS
     Dosage: 250 ?G, QOD
     Route: 058
     Dates: start: 20190327
  3. INTERFERON BETA-1B [Suspect]
     Active Substance: INTERFERON BETA-1B
     Indication: MULTIPLE SCLEROSIS
     Dosage: 250 ?G, QOD
     Route: 058
     Dates: start: 20190327

REACTIONS (6)
  - Paraesthesia [Recovering/Resolving]
  - Multiple sclerosis relapse [Recovering/Resolving]
  - Alopecia [Not Recovered/Not Resolved]
  - Hypoaesthesia [Recovering/Resolving]
  - Injection site bruising [Unknown]
  - Injection site reaction [Recovering/Resolving]

NARRATIVE: CASE EVENT DATE: 20190409
